FAERS Safety Report 6157657-7 (Version None)
Quarter: 2009Q2

REPORT INFORMATION
  Report Type: 
  Country: None (occurrence: None)
  Receive Date: 20090414
  Receipt Date: 20090414
  Transmission Date: 20091009
  Serious: Yes (Other)
  Sender: FDA-Public Use
  Company Number: None

PATIENT
  Age: 10 Year
  Sex: Male
  Weight: 42.6381 kg

DRUGS (1)
  1. SINGULAIR [Suspect]
     Indication: SEASONAL ALLERGY
     Dosage: CHEW ONE TABLET 1X PER DAY PO
     Route: 048
     Dates: start: 20090331, end: 20090410

REACTIONS (4)
  - ANXIETY [None]
  - HALLUCINATION [None]
  - OBSESSIVE-COMPULSIVE DISORDER [None]
  - WEIGHT DECREASED [None]
